FAERS Safety Report 23379688 (Version 1)
Quarter: 2024Q1

REPORT INFORMATION
  Report Type: Report from Study
  Country: RO (occurrence: RO)
  Receive Date: 20240108
  Receipt Date: 20240108
  Transmission Date: 20240410
  Serious: Yes (Death)
  Sender: FDA-Public Use
  Company Number: RO-ABBVIE-5575923

PATIENT
  Age: 54 Year
  Sex: Female

DRUGS (1)
  1. GLECAPREVIR\PIBRENTASVIR [Suspect]
     Active Substance: GLECAPREVIR\PIBRENTASVIR
     Indication: Hepatic cirrhosis
     Dosage: 300 MG/120 MG
     Route: 048
     Dates: start: 20230824, end: 20231018

REACTIONS (1)
  - Death [Fatal]

NARRATIVE: CASE EVENT DATE: 20231206
